FAERS Safety Report 4973190-X (Version None)
Quarter: 2006Q2

REPORT INFORMATION
  Report Type: 
  Country: None (occurrence: None)
  Receive Date: 20060414
  Receipt Date: 20050406
  Transmission Date: 20061013
  Serious: Yes (Hospitalization)
  Sender: FDA-Public Use
  Company Number: US-MERCK-0504USA01083

PATIENT
  Age: 81 Year
  Sex: Female
  Weight: 57 kg

DRUGS (7)
  1. VIOXX [Suspect]
     Route: 048
     Dates: end: 20040908
  2. ALLOPURINOL [Concomitant]
     Route: 065
  3. COZAAR [Concomitant]
     Route: 065
  4. DIGITEK [Concomitant]
     Route: 065
  5. LEVOTHROID [Concomitant]
     Route: 065
  6. LIPITOR [Concomitant]
     Route: 065
  7. PROTONIX [Concomitant]
     Route: 065

REACTIONS (3)
  - CARDIAC DISORDER [None]
  - CEREBROVASCULAR ACCIDENT [None]
  - COSTOCHONDRITIS [None]
